FAERS Safety Report 7657388-8 (Version None)
Quarter: 2011Q3

REPORT INFORMATION
  Report Type: 
  Country: None (occurrence: None)
  Receive Date: 20110804
  Receipt Date: 20110801
  Transmission Date: 20111222
  Serious: Yes (Death)
  Sender: FDA-Public Use
  Company Number: PHHY2011US19811

PATIENT
  Sex: Female
  Weight: 43.5 kg

DRUGS (7)
  1. EXJADE [Suspect]
     Indication: IRON METABOLISM DISORDER
     Dosage: 1500 MG, QD
     Route: 048
  2. FOLIC ACID [Concomitant]
  3. EXJADE [Suspect]
     Indication: MYELODYSPLASTIC SYNDROME
     Dosage: 125 MG, UNK
     Route: 048
     Dates: start: 20080403
  4. PREVACID [Concomitant]
  5. DIGOXIN [Concomitant]
     Indication: CARDIAC DISORDER
  6. SYNTHROID [Concomitant]
     Indication: THYROID DISORDER
  7. POTASSIUM CHLORIDE [Concomitant]
     Indication: BLOOD POTASSIUM ABNORMAL

REACTIONS (2)
  - COR PULMONALE [None]
  - PNEUMONIA [None]
